FAERS Safety Report 4981866-3 (Version None)
Quarter: 2006Q2

REPORT INFORMATION
  Report Type: 
  Country: None (occurrence: None)
  Receive Date: 20060425
  Receipt Date: 20060419
  Transmission Date: 20061013
  Serious: Yes (Other)
  Sender: FDA-Public Use
  Company Number: PHEH2006US05163

PATIENT

DRUGS (1)
  1. CLOZARIL [Suspect]
     Dosage: UNK, UNK

REACTIONS (2)
  - LEUKOPENIA [None]
  - NEOPLASM MALIGNANT [None]
